FAERS Safety Report 4425790-3 (Version None)
Quarter: 2004Q3

REPORT INFORMATION
  Report Type: 
  Country: None (occurrence: None)
  Receive Date: 20040810
  Receipt Date: 20040729
  Transmission Date: 20050211
  Serious: Yes (Death)
  Sender: FDA-Public Use
  Company Number: 2004JP001467

PATIENT
  Age: 43 Year
  Sex: Male
  Weight: 57.7 kg

DRUGS (4)
  1. PROGRAF [Suspect]
     Indication: RENAL TRANSPLANT
     Dosage: SEE IMAGE
     Route: 048
     Dates: start: 19961012, end: 19961025
  2. PROGRAF [Suspect]
     Indication: RENAL TRANSPLANT
     Dosage: SEE IMAGE
     Route: 048
     Dates: start: 19961026
  3. PREDNISOLONE [Concomitant]
  4. AZATHIOPRINE [Concomitant]

REACTIONS (1)
  - HEPATITIS C [None]
